FAERS Safety Report 19444037 (Version 1)
Quarter: 2021Q2

REPORT INFORMATION
  Report Type: Spontaneous
  Country: NL (occurrence: NL)
  Receive Date: 20210621
  Receipt Date: 20210621
  Transmission Date: 20210717
  Serious: Yes (Other)
  Sender: FDA-Public Use
  Company Number: NL-BAUSCH-BL-2021-020443

PATIENT
  Age: 65 Year
  Sex: Male
  Weight: 95 kg

DRUGS (2)
  1. ASTRAZENECA COVID?19 VACCINE [Suspect]
     Active Substance: AZD-1222
     Indication: COVID-19 IMMUNISATION
     Route: 065
     Dates: start: 20210227
  2. DEXAMETHASON [Suspect]
     Active Substance: DEXAMETHASONE
     Indication: HERNIA PAIN
     Dosage: ONE?OFF
     Route: 065
     Dates: start: 20210226

REACTIONS (4)
  - Muscle spasms [Recovered/Resolved]
  - Neck pain [Not Recovered/Not Resolved]
  - Pyrexia [Recovered/Resolved]
  - Dyspnoea [Recovered/Resolved]

NARRATIVE: CASE EVENT DATE: 20210227
